FAERS Safety Report 6443510-8 (Version None)
Quarter: 2009Q4

REPORT INFORMATION
  Report Type: 
  Country: None (occurrence: None)
  Receive Date: 20091117
  Receipt Date: 20091111
  Transmission Date: 20100525
  Serious: Yes (Other)
  Sender: FDA-Public Use
  Company Number: US-TEVA-214853USA

PATIENT
  Sex: Male

DRUGS (1)
  1. ALENDRONAT SODIUM, TABLETS, 5MG, 10MG, 40MG, 35MG, 70MG [Suspect]
     Dosage: ONCE WEEKLY
     Route: 048

REACTIONS (2)
  - DEAFNESS UNILATERAL [None]
  - PAIN IN JAW [None]
